FAERS Safety Report 8558469-7 (Version None)
Quarter: 2012Q3

REPORT INFORMATION
  Report Type: 
  Country: None (occurrence: None)
  Receive Date: 20120801
  Receipt Date: 20120727
  Transmission Date: 20120928
  Serious: Yes (Other)
  Sender: FDA-Public Use
  Company Number: US-009507513-1207USA012076

PATIENT

DRUGS (6)
  1. LANTUS [Concomitant]
  2. SIMVASTATIN [Concomitant]
  3. NASONEX [Suspect]
     Route: 045
  4. ENALAPRIL MALEATE [Suspect]
     Dosage: 1 DF, QD
     Route: 048
  5. NOVORAPID [Concomitant]
  6. ASPIRIN [Concomitant]

REACTIONS (12)
  - EYE SWELLING [None]
  - PYREXIA [None]
  - ERYTHEMA [None]
  - AURICULAR SWELLING [None]
  - SKIN ULCER [None]
  - BLOOD GLUCOSE DECREASED [None]
  - MALAISE [None]
  - OTORRHOEA [None]
  - SWELLING FACE [None]
  - DANDRUFF [None]
  - ANGIOEDEMA [None]
  - INFECTION [None]
